FAERS Safety Report 20764281 (Version 1)
Quarter: 2022Q2

REPORT INFORMATION
  Report Type: Spontaneous
  Country: US (occurrence: US)
  Receive Date: 20220428
  Receipt Date: 20220428
  Transmission Date: 20220721
  Serious: No
  Sender: FDA-Public Use
  Company Number: US-PFIZER INC-2021902665

PATIENT
  Sex: Male

DRUGS (2)
  1. LYRICA [Suspect]
     Active Substance: PREGABALIN
     Dosage: 25 MG
     Dates: start: 202101
  2. LYRICA [Suspect]
     Active Substance: PREGABALIN
     Dosage: 300 MG, 3X/DAY
     Dates: start: 202104, end: 202107

REACTIONS (8)
  - Intentional product misuse [Unknown]
  - Drug withdrawal syndrome [Unknown]
  - Headache [Recovered/Resolved]
  - Chills [Unknown]
  - Pyrexia [Unknown]
  - Feeling abnormal [Unknown]
  - Suspected COVID-19 [Unknown]
  - Overdose [Unknown]

NARRATIVE: CASE EVENT DATE: 20210101
